FAERS Safety Report 8317265 (Version 2)
Quarter: 2012Q4

REPORT INFORMATION
  Report Type: 
  Country: US (occurrence: US)
  Receive Date: 20111230
  Receipt Date: 20121029
  Transmission Date: 20130627
  Serious: Yes (Other)
  Sender: FDA-Public Use
  Company Number: US-ROCHE-794665

PATIENT
  Age: 49 None
  Sex: Female
  Weight: 68.1 kg

DRUGS (3)
  1. ACCUTANE [Suspect]
     Indication: ROSACEA
     Route: 065
  2. ACCUTANE [Suspect]
     Route: 048
     Dates: start: 19950217, end: 19950608
  3. ACCUTANE [Suspect]
     Route: 065
     Dates: start: 19950717, end: 1998

REACTIONS (12)
  - Colitis ulcerative [Unknown]
  - Depression [Unknown]
  - Intestinal obstruction [Unknown]
  - Anal fissure [Unknown]
  - Large intestine polyp [Recovered/Resolved]
  - Conjunctivitis [Recovered/Resolved]
  - Pain [Recovered/Resolved]
  - Irritable bowel syndrome [Unknown]
  - Dry skin [Unknown]
  - Conjunctivitis [Unknown]
  - Visual impairment [Unknown]
  - Cheilitis [Unknown]
